FAERS Safety Report 4560073-2 (Version None)
Quarter: 2005Q1

REPORT INFORMATION
  Report Type: 
  Country: None (occurrence: None)
  Receive Date: 20050124
  Receipt Date: 20041209
  Transmission Date: 20050727
  Serious: Yes (Other)
  Sender: FDA-Public Use
  Company Number: C-04-0070

PATIENT
  Age: 33 Year
  Sex: Female

DRUGS (3)
  1. LINDANE [Suspect]
     Indication: LICE INFESTATION
     Dosage: SINGLE APPLICATION
     Dates: start: 20040801
  2. LINDANE [Suspect]
     Indication: LICE INFESTATION
     Dosage: SINGLE APPLICATION; 14 DAYS AFTER FIRST APPLICATION
  3. OVIDE [Concomitant]

REACTIONS (5)
  - ALOPECIA [None]
  - BLISTER [None]
  - BURNING SENSATION [None]
  - MADAROSIS [None]
  - PURULENCE [None]
